FAERS Safety Report 12236249 (Version 3)
Quarter: 2021Q4

REPORT INFORMATION
  Report Type: Report from Study
  Country: None (occurrence: CA)
  Receive Date: 20160404
  Receipt Date: 20211022
  Transmission Date: 20220303
  Serious: Yes (Death, Hospitalization)
  Sender: FDA-Public Use
  Company Number: CA-ABBVIE-16P-028-1595868-00

PATIENT
  Age: 91 Year
  Sex: Male
  Weight: 91.71 kg

DRUGS (2)
  1. LUPRON DEPOT [Suspect]
     Active Substance: LEUPROLIDE ACETATE
     Indication: Prostate cancer
     Route: 030
     Dates: start: 20140522, end: 20160311
  2. LUPRON DEPOT [Suspect]
     Active Substance: LEUPROLIDE ACETATE
     Route: 030
     Dates: start: 20160311

REACTIONS (7)
  - Death [Fatal]
  - Dyspnoea [Recovering/Resolving]
  - Arthritis bacterial [Recovering/Resolving]
  - Arthralgia [Recovering/Resolving]
  - Oedema [Recovering/Resolving]
  - Gout [Unknown]
  - Urinary retention [Unknown]

NARRATIVE: CASE EVENT DATE: 20160101
